FAERS Safety Report 13962623 (Version 1)
Quarter: 2017Q3

REPORT INFORMATION
  Report Type: Report from Study
  Country: None (occurrence: CA)
  Receive Date: 20170913
  Receipt Date: 20170913
  Transmission Date: 20171128
  Serious: Yes (Hospitalization)
  Sender: FDA-Public Use
  Company Number: CA-ABBVIE-17K-028-2094605-00

PATIENT
  Age: 37 Year
  Sex: Female

DRUGS (2)
  1. HUMIRA [Suspect]
     Active Substance: ADALIMUMAB
     Indication: CROHN^S DISEASE
     Route: 058
     Dates: start: 20071019
  2. HUMIRA [Suspect]
     Active Substance: ADALIMUMAB
     Route: 058
     Dates: start: 2017

REACTIONS (3)
  - Psychotic disorder [Recovered/Resolved]
  - Bipolar I disorder [Not Recovered/Not Resolved]
  - Psychotic disorder [Recovered/Resolved]

NARRATIVE: CASE EVENT DATE: 201707
